FAERS Safety Report 4747942-5 (Version None)
Quarter: 2005Q3

REPORT INFORMATION
  Report Type: 
  Country: None (occurrence: None)
  Receive Date: 20050818
  Receipt Date: 20050617
  Transmission Date: 20060218
  Serious: Yes (Death)
  Sender: FDA-Public Use
  Company Number: US-ABBOTT-05P-163-0303488-00

PATIENT
  Sex: Male

DRUGS (5)
  1. DEPAKOTE [Suspect]
     Indication: MOOD SWINGS
     Route: 048
     Dates: start: 20040728
  2. LEVOTHYROXINE SODIUM [Concomitant]
     Indication: DRUG USE FOR UNKNOWN INDICATION
     Dates: start: 20040301
  3. OLANZAPINE [Concomitant]
     Indication: DRUG USE FOR UNKNOWN INDICATION
     Dates: start: 20040831
  4. CARBAMAZEPINE [Concomitant]
     Indication: DRUG USE FOR UNKNOWN INDICATION
     Dates: start: 20040318
  5. LEVOTHYROXINE SODIUM [Concomitant]
     Dates: start: 20040301

REACTIONS (4)
  - BIPOLAR I DISORDER [None]
  - COMPLETED SUICIDE [None]
  - GUN SHOT WOUND [None]
  - PSYCHOTIC DISORDER [None]
